FAERS Safety Report 12967684 (Version 1)
Quarter: 2016Q4

REPORT INFORMATION
  Report Type: Spontaneous
  Country: US (occurrence: US)
  Receive Date: 20161123
  Receipt Date: 20161123
  Transmission Date: 20170207
  Serious: No
  Sender: FDA-Public Use
  Company Number: US-TEVA-706220USA

PATIENT
  Age: 59 Year
  Sex: Female
  Weight: 81.72 kg

DRUGS (9)
  1. OXYBUTYNIN [Suspect]
     Active Substance: OXYBUTYNIN
     Indication: URINARY INCONTINENCE
     Dosage: 10 MILLIGRAM DAILY;
     Dates: start: 2015
  2. TOVIAZ [Concomitant]
     Active Substance: FESOTERODINE FUMARATE
     Route: 048
     Dates: start: 20151202
  3. URIBEL [Concomitant]
     Active Substance: HYOSCYAMINE SULFATE\METHENAMINE\METHYLENE BLUE\PHENYL SALICYLATE\SODIUM PHOSPHATE, MONOBASIC, MONOHYDRATE
     Route: 048
  4. ESTRACE [Concomitant]
     Active Substance: ESTRADIOL
     Indication: VAGINAL LACERATION
  5. LAMICTAL [Concomitant]
     Active Substance: LAMOTRIGINE
     Route: 048
  6. NEXIUM [Concomitant]
     Active Substance: ESOMEPRAZOLE MAGNESIUM
     Route: 048
  7. LOVAZA [Concomitant]
     Active Substance: OMEGA-3-ACID ETHYL ESTERS
     Route: 048
  8. TOPAMAX [Concomitant]
     Active Substance: TOPIRAMATE
     Route: 048
  9. CYMBALTA [Concomitant]
     Active Substance: DULOXETINE HYDROCHLORIDE
     Route: 048

REACTIONS (8)
  - Drug effect decreased [Unknown]
  - Liver disorder [Unknown]
  - Dry mouth [Unknown]
  - Hysterectomy [Unknown]
  - Urinary tract infection [Unknown]
  - Arthritis [Unknown]
  - Dysuria [Unknown]
  - Hypertension [Unknown]

NARRATIVE: CASE EVENT DATE: 2015
